FAERS Safety Report 16476686 (Version 1)
Quarter: 2019Q2

REPORT INFORMATION
  Report Type: Spontaneous
  Country: US (occurrence: US)
  Receive Date: 20190626
  Receipt Date: 20190626
  Transmission Date: 20190711
  Serious: No
  Sender: FDA-Public Use
  Company Number: US-TEVA-2019-US-1063762

PATIENT

DRUGS (1)
  1. ESTRADIOL. [Suspect]
     Active Substance: ESTRADIOL
     Route: 065

REACTIONS (6)
  - Drug ineffective [Unknown]
  - Hypersensitivity [Unknown]
  - Pain in extremity [Unknown]
  - Chest pain [Unknown]
  - Muscle spasms [Unknown]
  - Abnormal weight gain [Unknown]
